FAERS Safety Report 4925939-X (Version None)
Quarter: 2006Q1

REPORT INFORMATION
  Report Type: 
  Country: None (occurrence: None)
  Receive Date: 20060228
  Receipt Date: 20050419
  Transmission Date: 20060701
  Serious: No
  Sender: FDA-Public Use
  Company Number: US-GLAXOSMITHKLINE-A0554800A

PATIENT
  Age: 53 Year
  Sex: Female

DRUGS (7)
  1. LAMICTAL [Suspect]
     Indication: MULTIPLE SCLEROSIS
     Dosage: 150MG TWICE PER DAY
     Route: 048
  2. AVONEX [Concomitant]
  3. KLONOPIN [Concomitant]
     Route: 065
  4. WELLBUTRIN SR [Concomitant]
     Route: 048
  5. MACRODANTIN [Concomitant]
  6. SOLU-MEDROL [Concomitant]
     Route: 065
  7. ACTONEL [Concomitant]
     Route: 065

REACTIONS (2)
  - ABDOMINAL DISTENSION [None]
  - FLATULENCE [None]
